FAERS Safety Report 9619982 (Version 2)
Quarter: 2013Q4

REPORT INFORMATION
  Report Type: Spontaneous
  Country: US (occurrence: US)
  Receive Date: 20131014
  Receipt Date: 20131115
  Transmission Date: 20140711
  Serious: No
  Sender: FDA-Public Use
  Company Number: US-PFIZER INC-2013290780

PATIENT
  Age: 35 Year
  Sex: Male
  Weight: 83.9 kg

DRUGS (3)
  1. EFFEXOR XR [Suspect]
     Indication: ANXIETY
     Dosage: 150 MG, DAILY
     Dates: end: 20131005
  2. EFFEXOR XR [Suspect]
     Indication: DEPRESSION
  3. FISH OIL [Concomitant]
     Dosage: 900 MG, DAILY

REACTIONS (8)
  - Drug withdrawal syndrome [Unknown]
  - Paraesthesia [Unknown]
  - Nausea [Unknown]
  - Dizziness [Unknown]
  - Abdominal pain upper [Unknown]
  - Disturbance in attention [Unknown]
  - Agitation [Unknown]
  - Confusional state [Unknown]
